FAERS Safety Report 6877315-0 (Version None)
Quarter: 2010Q3

REPORT INFORMATION
  Report Type: 
  Country: None (occurrence: None)
  Receive Date: 20100727
  Receipt Date: 20090902
  Transmission Date: 20110219
  Serious: No
  Sender: FDA-Public Use
  Company Number: US-ABBOTT-09P-163-0595862-00

PATIENT
  Sex: Female
  Weight: 51.756 kg

DRUGS (3)
  1. SYNTHROID [Suspect]
     Indication: HYPOTHYROIDISM
     Route: 048
     Dates: start: 20090610
  2. VITAMIN B COMPLEX CAP [Concomitant]
     Indication: VITAMIN SUPPLEMENTATION
  3. UNKNOWN SUPPLEMENT [Concomitant]
     Indication: SUPPLEMENTATION THERAPY

REACTIONS (1)
  - DISTURBANCE IN ATTENTION [None]
